FAERS Safety Report 8164047-4 (Version None)
Quarter: 2012Q1

REPORT INFORMATION
  Report Type: 
  Country: None (occurrence: None)
  Receive Date: 20120224
  Receipt Date: 20120214
  Transmission Date: 20120608
  Serious: Yes (Other)
  Sender: FDA-Public Use
  Company Number: PHHY2012AU012867

PATIENT

DRUGS (1)
  1. CLOZARIL [Suspect]
     Dosage: 75 MG, UNK
     Route: 064

REACTIONS (3)
  - FOETAL EXPOSURE DURING PREGNANCY [None]
  - RENAL IMPAIRMENT [None]
  - PREMATURE BABY [None]
